FAERS Safety Report 8495359-2 (Version None)
Quarter: 2012Q3

REPORT INFORMATION
  Report Type: 
  Country: None (occurrence: None)
  Receive Date: 20120709
  Receipt Date: 20120704
  Transmission Date: 20120928
  Serious: Yes (Life-Threatening)
  Sender: FDA-Public Use
  Company Number: FR-ASTRAZENECA-2012SE45586

PATIENT
  Sex: Female

DRUGS (5)
  1. SYMBICORT [Suspect]
     Indication: ASTHMA
     Dosage: 160/4.5 UG PER DOSE UNKNOWN
     Route: 055
  2. AIROMIR [Concomitant]
     Indication: ASTHMA
  3. XYZAL [Concomitant]
     Indication: ASTHMA
  4. SINGULAIR [Suspect]
     Indication: ASTHMA
     Route: 048
  5. ISOTRETINOIN [Suspect]
     Indication: ACNE
     Route: 048
     Dates: start: 20111201, end: 20120514

REACTIONS (2)
  - SUICIDE ATTEMPT [None]
  - DEPRESSION [None]
